FAERS Safety Report 16134241 (Version 4)
Quarter: 2019Q2

REPORT INFORMATION
  Report Type: Spontaneous
  Country: US (occurrence: US)
  Receive Date: 20190329
  Receipt Date: 20190509
  Transmission Date: 20190711
  Serious: No
  Sender: FDA-Public Use
  Company Number: PHEH2019US013568

PATIENT
  Sex: Female

DRUGS (2)
  1. VOTRIENT [Suspect]
     Active Substance: PAZOPANIB HYDROCHLORIDE
     Dosage: 400 MG, QD
     Route: 048
  2. VOTRIENT [Suspect]
     Active Substance: PAZOPANIB HYDROCHLORIDE
     Indication: RENAL CANCER
     Dosage: 800 MG, QD
     Route: 048
     Dates: start: 20190212

REACTIONS (8)
  - Diarrhoea [Unknown]
  - Taste disorder [Unknown]
  - Blood bilirubin increased [Unknown]
  - Dizziness [Unknown]
  - Gastric disorder [Unknown]
  - Hepatic enzyme increased [Unknown]
  - Alopecia [Unknown]
  - Hair colour changes [Unknown]
